FAERS Safety Report 8673149 (Version 2)
Quarter: 2015Q2

REPORT INFORMATION
  Report Type: Report from Study
  Country: US (occurrence: US)
  Receive Date: 20120719
  Receipt Date: 20150408
  Transmission Date: 20150821
  Serious: Yes (Death)
  Sender: FDA-Public Use
  Company Number: US-ROCHE-1086785

PATIENT
  Age: 91 Year
  Sex: Female

DRUGS (6)
  1. PROPARACAINE [Concomitant]
     Active Substance: PROPARACAINE
     Route: 061
  2. LUCENTIS [Suspect]
     Active Substance: RANIBIZUMAB
     Indication: RETINAL VEIN OCCLUSION
  3. ZYMAR [Concomitant]
     Active Substance: GATIFLOXACIN
  4. LIDOCAINE. [Concomitant]
     Active Substance: LIDOCAINE
     Route: 061
  5. LUCENTIS [Suspect]
     Active Substance: RANIBIZUMAB
     Indication: MACULAR DEGENERATION
     Route: 050
  6. BETADINE [Concomitant]
     Active Substance: POVIDONE-IODINE
     Route: 061

REACTIONS (1)
  - Death [Fatal]

NARRATIVE: CASE EVENT DATE: 20101007
